FAERS Safety Report 5110870-X (Version None)
Quarter: 2006Q3

REPORT INFORMATION
  Report Type: 
  Country: None (occurrence: None)
  Receive Date: 20060919
  Receipt Date: 20060803
  Transmission Date: 20061208
  Serious: Yes (Hospitalization)
  Sender: FDA-Public Use
  Company Number: FRPFM-E-20060081

PATIENT
  Age: 58 Year
  Sex: Female

DRUGS (11)
  1. NAVELBINE [Suspect]
     Indication: BREAST CANCER
     Dates: start: 20060307, end: 20060518
  2. MITOMYCIN [Suspect]
     Indication: BREAST CANCER
     Dates: start: 20060307, end: 20060518
  3. FOLINORAL [Suspect]
     Indication: BREAST CANCER
     Dates: start: 20060307, end: 20060518
  4. FLUOROURACIL [Suspect]
     Indication: BREAST CANCER
     Dates: start: 20060307, end: 20060518
  5. ZOMETA [Suspect]
     Indication: BREAST CANCER
     Dates: start: 20060601, end: 20060601
  6. FASLODEX [Suspect]
     Indication: BREAST CANCER
     Dates: start: 20060601, end: 20060601
  7. ZOPHREN [Concomitant]
  8. GRANOCYTE [Concomitant]
  9. ROCEPHIN [Concomitant]
  10. FLAGYL [Concomitant]
  11. CIFLOX [Concomitant]

REACTIONS (6)
  - CUTANEOUS VASCULITIS [None]
  - DRUG INTOLERANCE [None]
  - ILEITIS [None]
  - NEPHROTIC SYNDROME [None]
  - RENAL VASCULITIS [None]
  - VASCULAR PURPURA [None]
